FAERS Safety Report 4897460-9 (Version None)
Quarter: 2006Q1

REPORT INFORMATION
  Report Type: 
  Country: None (occurrence: None)
  Receive Date: 20060130
  Receipt Date: 20060130
  Transmission Date: 20060701
  Serious: Yes (Hospitalization)
  Sender: FDA-Public Use
  Company Number: None

PATIENT
  Sex: Female
  Weight: 68 kg

DRUGS (3)
  1. FLUDARABINE PHOSPHATE [Suspect]
     Indication: STEM CELL TRANSPLANT
     Dosage: 52 MG ONCE A DAY IV DRIP
     Route: 041
     Dates: start: 20050719, end: 20050723
  2. CAMPATH [Suspect]
     Dosage: 20 MG ONCE A DAY IV DRIP
     Route: 041
  3. BUSULFAN [Suspect]
     Dosage: 569 MG ONCE A DAY IV DRIP
     Route: 041
     Dates: start: 20050718, end: 20050723

REACTIONS (12)
  - ASTHENIA [None]
  - BLOOD CULTURE POSITIVE [None]
  - DYSPNOEA [None]
  - EXOPHTHALMOS [None]
  - HEADACHE [None]
  - HEMIPLEGIA [None]
  - PYREXIA [None]
  - SOMNOLENCE [None]
  - TACHYCARDIA [None]
  - TACHYPNOEA [None]
  - UNRESPONSIVE TO PAIN STIMULI [None]
  - UNRESPONSIVE TO VERBAL STIMULI [None]
